FAERS Safety Report 22605892 (Version 1)
Quarter: 2023Q2

REPORT INFORMATION
  Report Type: Report from Study
  Country: US (occurrence: None)
  Receive Date: 20230615
  Receipt Date: 20230615
  Transmission Date: 20230722
  Serious: Yes (Hospitalization)
  Sender: FDA-Public Use
  Company Number: US-ROCHE-3272224

PATIENT
  Sex: Male
  Weight: 84.8 kg

DRUGS (4)
  1. ATEZOLIZUMAB [Suspect]
     Active Substance: ATEZOLIZUMAB
     Indication: Small cell lung cancer
     Dosage: ON 24/AUG/2022, LAST DOSE OF ATEZOLIZUMAB WAS ADMINISTERED
     Route: 041
     Dates: start: 20220622
  2. ETOPOSIDE [Suspect]
     Active Substance: ETOPOSIDE
     Indication: Small cell lung cancer
     Dosage: ON 05/AUG/2022, LAST DOSE OF ETOPOSIDE WAS ADMINISTERED
     Route: 042
     Dates: start: 20220622, end: 20220805
  3. CARBOPLATIN [Suspect]
     Active Substance: CARBOPLATIN
     Indication: Small cell lung cancer
     Dosage: ON 03/AUG/2022, LAST DOSE OF CARBOPLATIN  WAS ADMINISTERED
     Route: 042
     Dates: start: 20220622, end: 20220803
  4. CEFEPIME [Concomitant]
     Active Substance: CEFEPIME HYDROCHLORIDE
     Route: 042
     Dates: start: 20220908

REACTIONS (3)
  - Pyrexia [Recovered/Resolved]
  - Hypoxia [Not Recovered/Not Resolved]
  - Pneumonitis [Not Recovered/Not Resolved]

NARRATIVE: CASE EVENT DATE: 20220907
